FAERS Safety Report 4784331-1 (Version None)
Quarter: 2005Q3

REPORT INFORMATION
  Report Type: 
  Country: None (occurrence: None)
  Receive Date: 20050930
  Receipt Date: 20050922
  Transmission Date: 20060218
  Serious: Yes (Other)
  Sender: FDA-Public Use
  Company Number: US-JNJFOC-20050800305

PATIENT
  Sex: Male
  Weight: 70.76 kg

DRUGS (3)
  1. HALDOL [Suspect]
     Indication: DRUG USE FOR UNKNOWN INDICATION
     Route: 030
     Dates: start: 20050708, end: 20050708
  2. SINEMET [Concomitant]
  3. SINEMET [Concomitant]
     Indication: PARKINSON'S DISEASE

REACTIONS (4)
  - AGGRESSION [None]
  - AGITATION [None]
  - HYPERSOMNIA [None]
  - STUPOR [None]
